FAERS Safety Report 21846400 (Version 1)
Quarter: 2023Q1

REPORT INFORMATION
  Report Type: Report from Study
  Country: US (occurrence: None)
  Receive Date: 20230111
  Receipt Date: 20230111
  Transmission Date: 20230417
  Serious: Yes (Hospitalization)
  Sender: FDA-Public Use
  Company Number: US-ROCHE-3258184

PATIENT
  Age: 65 Year
  Sex: Female

DRUGS (4)
  1. BEVACIZUMAB [Suspect]
     Active Substance: BEVACIZUMAB
     Indication: Fallopian tube cancer
     Dosage: 90 MIN ON DAY 1
     Route: 042
     Dates: start: 20081204, end: 20090205
  2. PACLITAXEL [Suspect]
     Active Substance: PACLITAXEL
     Indication: Fallopian tube cancer
     Dosage: 3HRS ON DAY 1
     Route: 042
     Dates: start: 20081204, end: 20090205
  3. DOCETAXEL [Suspect]
     Active Substance: DOCETAXEL
     Indication: Fallopian tube cancer
     Dosage: 1HR ON DAY 1
     Route: 042
     Dates: start: 20081204, end: 20090205
  4. CARBOPLATIN [Suspect]
     Active Substance: CARBOPLATIN
     Indication: Fallopian tube cancer
     Dosage: AUC 5 ?30 MIN ON DAY 1
     Route: 042
     Dates: start: 20081204, end: 20090205

REACTIONS (1)
  - Depressed level of consciousness [Recovered/Resolved]

NARRATIVE: CASE EVENT DATE: 20090209
